FAERS Safety Report 16885857 (Version 1)
Quarter: 2019Q4

REPORT INFORMATION
  Report Type: Spontaneous
  Country: JP (occurrence: JP)
  Receive Date: 20191004
  Receipt Date: 20191004
  Transmission Date: 20200122
  Serious: Yes (Other)
  Sender: FDA-Public Use
  Company Number: JP-ELI_LILLY_AND_COMPANY-JP201910001970

PATIENT
  Age: 65 Year
  Sex: Male

DRUGS (4)
  1. CARBOPLATIN. [Suspect]
     Active Substance: CARBOPLATIN
     Indication: OROPHARYNGEAL CANCER
     Dosage: UNK, UNKNOWN
     Route: 065
     Dates: start: 20190618, end: 20190730
  2. ERBITUX [Suspect]
     Active Substance: CETUXIMAB
     Dosage: 250 MG/M2, 0.3 MONTH
     Route: 041
     Dates: start: 201906, end: 20190730
  3. PACLITAXEL. [Suspect]
     Active Substance: PACLITAXEL
     Indication: OROPHARYNGEAL CANCER
     Dosage: 100 MG/M2, UNK
     Route: 065
     Dates: start: 20190618, end: 20190730
  4. ERBITUX [Suspect]
     Active Substance: CETUXIMAB
     Indication: OROPHARYNGEAL CANCER
     Dosage: 400 MG/M2, UNK
     Route: 041
     Dates: start: 20190618, end: 20190618

REACTIONS (2)
  - Neutrophil count decreased [Not Recovered/Not Resolved]
  - Off label use [Unknown]

NARRATIVE: CASE EVENT DATE: 201907
